FAERS Safety Report 8037571-2 (Version None)
Quarter: 2012Q1

REPORT INFORMATION
  Report Type: 
  Country: None (occurrence: None)
  Receive Date: 20120106
  Receipt Date: 20111228
  Transmission Date: 20120608
  Serious: Yes (Hospitalization)
  Sender: FDA-Public Use
  Company Number: 1000024171

PATIENT
  Age: 53 Year
  Sex: Male

DRUGS (9)
  1. CALCIUM CARBONATE [Suspect]
     Dosage: ORAL
     Route: 048
  2. CALCIPARINE [Suspect]
     Dosage: SUBCUTANEOUS
     Route: 058
     Dates: start: 20110708, end: 20110808
  3. VALPROATE SODIUM [Suspect]
     Dosage: 1000 MG (1000 MG 1 IN 1 D), ORAL
     Route: 048
     Dates: start: 20110716
  4. PREDNISONE [Suspect]
     Dosage: 30 MG (30 MG, 1 IN 1 D), ORAL
     Route: 048
     Dates: start: 20110501
  5. CITALOPRAM HYDROBROMIDE [Suspect]
     Dosage: ORAL
     Route: 048
  6. RENAGEL [Suspect]
     Dosage: 1 DOSAGE FORM (1 DOSAGE FORMS, 1 IN 1 D), ORAL
     Route: 048
  7. EUPRESSYL (URAPIDIL) (30 MILLIGRAM) [Suspect]
     Dosage: 90 MG (90 MG, 1 IN 1 D), ORAL
     Route: 048
     Dates: start: 20110529
  8. KAYEXALATE [Suspect]
     Dosage: 6.4286 G (45 GM, 1 IN 1 WK)
     Dates: start: 20110603
  9. ARANESP [Suspect]
     Dosage: 3.3333 MICROGRAM (100 MCG, 1 IN 1 M)

REACTIONS (3)
  - THROMBOCYTOPENIA [None]
  - ANAEMIA [None]
  - RENAL IMPAIRMENT [None]
